FAERS Safety Report 19820264 (Version 2)
Quarter: 2021Q4

REPORT INFORMATION
  Report Type: Spontaneous
  Country: RO (occurrence: RO)
  Receive Date: 20210913
  Receipt Date: 20211124
  Transmission Date: 20220303
  Serious: Yes (Other)
  Sender: FDA-Public Use
  Company Number: RO-NOVARTISPH-NVSC2021RO205459

PATIENT
  Age: 28 Year
  Sex: Male

DRUGS (6)
  1. ARIPIPRAZOLE [Suspect]
     Active Substance: ARIPIPRAZOLE
     Indication: Cerebral atrophy
     Dosage: 10 MG, QD
     Route: 048
  2. LORAZEPAM [Suspect]
     Active Substance: LORAZEPAM
     Indication: Cerebral atrophy
     Dosage: 2 MG, QD
     Route: 048
  3. QUETIAPINE [Suspect]
     Active Substance: QUETIAPINE
     Indication: Cerebral atrophy
     Dosage: 200 MG, QD
     Route: 048
  4. VALPROATE SODIUM [Suspect]
     Active Substance: VALPROATE SODIUM
     Indication: Cerebral atrophy
     Dosage: 1500 MG
     Route: 048
  5. CARIPRAZINE [Concomitant]
     Active Substance: CARIPRAZINE
     Indication: Cerebral atrophy
     Dosage: 1.5 MG
     Route: 065
  6. CARIPRAZINE [Concomitant]
     Active Substance: CARIPRAZINE
     Dosage: 3 MG, QD
     Route: 065

REACTIONS (1)
  - Weight increased [Unknown]
